FAERS Safety Report 8831819 (Version 2)
Quarter: 2012Q4

REPORT INFORMATION
  Report Type: 
  Country: JP (occurrence: JP)
  Receive Date: 20121009
  Receipt Date: 20121130
  Transmission Date: 20130627
  Serious: Yes (Hospitalization)
  Sender: FDA-Public Use
  Company Number: JP-PFIZER INC-2012244678

PATIENT
  Age: 63 Year
  Sex: Male

DRUGS (1)
  1. CORTRIL [Suspect]
     Indication: ADRENALECTOMY
     Dosage: 15 mg/day
     Route: 048

REACTIONS (2)
  - Cardiac failure [Recovering/Resolving]
  - Pneumonia [Recovering/Resolving]
